FAERS Safety Report 17637525 (Version 1)
Quarter: 2020Q2

REPORT INFORMATION
  Report Type: Spontaneous
  Country: US (occurrence: US)
  Receive Date: 20200407
  Receipt Date: 20200407
  Transmission Date: 20200713
  Serious: No
  Sender: FDA-Public Use
  Company Number: US-BAUSCH-BL-2020-007828

PATIENT
  Age: 89 Year
  Sex: Male

DRUGS (1)
  1. BESIVANCE [Suspect]
     Active Substance: BESIFLOXACIN
     Indication: PRODUCT USED FOR UNKNOWN INDICATION
     Route: 065

REACTIONS (3)
  - Eye pain [Unknown]
  - Eye swelling [Unknown]
  - Ocular hyperaemia [Unknown]
